FAERS Safety Report 25538245 (Version 4)
Quarter: 2025Q3

REPORT INFORMATION
  Report Type: Report from Study
  Country: US (occurrence: US)
  Receive Date: 20250710
  Receipt Date: 20250828
  Transmission Date: 20251021
  Serious: Yes (Hospitalization)
  Sender: SUNOVION
  Company Number: US-SMPA-2025SPA007800AA

PATIENT
  Age: 89 Year
  Sex: Male

DRUGS (14)
  1. ORGOVYX [Suspect]
     Active Substance: RELUGOLIX
     Indication: Prostate cancer
     Route: 048
  2. ORGOVYX [Suspect]
     Active Substance: RELUGOLIX
     Route: 048
  3. ATORVASTATIN [Concomitant]
     Active Substance: ATORVASTATIN
  4. DOXYCYCLINE [Concomitant]
     Active Substance: DOXYCYCLINE
  5. FLOMAX [Concomitant]
     Active Substance: TAMSULOSIN HYDROCHLORIDE
  6. LATANOPROST [Concomitant]
     Active Substance: LATANOPROST
  7. LISINOPRIL [Concomitant]
     Active Substance: LISINOPRIL
  8. METOPROLOL [Concomitant]
     Active Substance: METOPROLOL
  9. NUBEQA [Concomitant]
     Active Substance: DAROLUTAMIDE
  10. PREDNISONE [Concomitant]
     Active Substance: PREDNISONE
  11. FISH OIL [Concomitant]
     Active Substance: FISH OIL
  12. CALCIUM\VITAMIN D [Concomitant]
     Active Substance: CALCIUM\VITAMIN D
  13. XARELTO [Concomitant]
     Active Substance: RIVAROXABAN
  14. CALCIUM [Concomitant]
     Active Substance: CALCIUM

REACTIONS (4)
  - COVID-19 [Unknown]
  - Gout [Unknown]
  - Prostatic specific antigen increased [Unknown]
  - Product dose omission issue [Recovered/Resolved]
